FAERS Safety Report 5538003-6 (Version None)
Quarter: 2007Q4

REPORT INFORMATION
  Report Type: 
  Country: None (occurrence: None)
  Receive Date: 20071207
  Receipt Date: 20071128
  Transmission Date: 20080405
  Serious: Yes (Hospitalization)
  Sender: FDA-Public Use
  Company Number: FR-PFIZER INC-2007100924

PATIENT
  Sex: Female

DRUGS (7)
  1. TAHOR [Suspect]
     Route: 048
  2. AMIODARONE HCL [Suspect]
     Indication: ATRIAL FIBRILLATION
     Route: 048
  3. PERINDOPRIL [Suspect]
     Route: 048
  4. URAPIDIL [Suspect]
     Route: 048
  5. FUROSEMIDE [Suspect]
     Route: 048
  6. CLOPIDOGREL [Suspect]
     Route: 048
  7. LEVOTHYROXINE SODIUM [Concomitant]
     Route: 048

REACTIONS (3)
  - DYSPNOEA [None]
  - HYPOXIA [None]
  - LUNG DISORDER [None]
